FAERS Safety Report 4368406-7 (Version None)
Quarter: 2004Q2

REPORT INFORMATION
  Report Type: 
  Country: None (occurrence: None)
  Receive Date: 20040602
  Receipt Date: 20040524
  Transmission Date: 20050107
  Serious: Yes (Disabling)
  Sender: FDA-Public Use
  Company Number: GB-GLAXOSMITHKLINE-B0333712A

PATIENT
  Age: 48 Year
  Sex: Female

DRUGS (5)
  1. LAMICTAL [Suspect]
     Indication: EPILEPSY
     Dosage: 75MG PER DAY
     Route: 048
     Dates: start: 20040219, end: 20040429
  2. PHENYTOIN [Concomitant]
     Indication: EPILEPSY
     Dosage: 45MG PER DAY
     Route: 048
     Dates: start: 20040212
  3. CLOBAZAM [Concomitant]
     Indication: EPILEPSY
     Dosage: 10MG PER DAY
     Route: 048
  4. VALPROATE SODIUM [Concomitant]
     Indication: EPILEPSY
     Route: 048
  5. CITALOPRAM [Concomitant]
     Indication: DEPRESSION
     Dosage: 10MG PER DAY
     Route: 048

REACTIONS (1)
  - PNEUMONITIS [None]
